FAERS Safety Report 19810062 (Version 1)
Quarter: 2021Q3

REPORT INFORMATION
  Report Type: Spontaneous
  Country: US (occurrence: US)
  Receive Date: 20210908
  Receipt Date: 20210908
  Transmission Date: 20211014
  Serious: No
  Sender: FDA-Public Use
  Company Number: US-009507513-2109USA000255

PATIENT
  Age: 64 Year
  Sex: Male

DRUGS (2)
  1. PROBIOTICS NOS [Concomitant]
     Active Substance: PROBIOTICS NOS
  2. DIFICID [Suspect]
     Active Substance: FIDAXOMICIN
     Indication: CLOSTRIDIUM DIFFICILE INFECTION
     Dosage: 200 MG TWICE A DAY
     Route: 048
     Dates: start: 20210824

REACTIONS (7)
  - Pain [Recovered/Resolved]
  - Rash maculo-papular [Recovered/Resolved]
  - Muscle spasms [Unknown]
  - Flatulence [Unknown]
  - Abdominal discomfort [Recovered/Resolved]
  - Post inflammatory pigmentation change [Not Recovered/Not Resolved]
  - Pruritus [Recovered/Resolved]

NARRATIVE: CASE EVENT DATE: 202108
